FAERS Safety Report 10632814 (Version 1)
Quarter: 2014Q4

REPORT INFORMATION
  Report Type: Spontaneous
  Country: US (occurrence: US)
  Receive Date: 20141205
  Receipt Date: 20141205
  Transmission Date: 20150529
  Serious: No
  Sender: FDA-Public Use
  Company Number: US-BRISTOL-MYERS SQUIBB COMPANY-21608385

PATIENT
  Age: 50 Year
  Sex: Male

DRUGS (1)
  1. SPRYCEL [Suspect]
     Active Substance: DASATINIB
     Indication: CHRONIC MYELOID LEUKAEMIA
     Dosage: TABS
     Route: 048
     Dates: start: 201312

REACTIONS (2)
  - Oedema peripheral [Unknown]
  - Amnesia [Unknown]

NARRATIVE: CASE EVENT DATE: 20141114
